FAERS Safety Report 9645814 (Version 1)
Quarter: 2013Q4

REPORT INFORMATION
  Report Type: Spontaneous
  Country: US (occurrence: None)
  Receive Date: 20131024
  Receipt Date: 20131024
  Transmission Date: 20140711
  Serious: Yes (Hospitalization)
  Sender: FDA-Public Use
  Company Number: None

PATIENT
  Age: 48 Year
  Sex: Female
  Weight: 98.3 kg

DRUGS (9)
  1. JANUVIA 100MG [Suspect]
     Indication: DIABETES MELLITUS
     Route: 048
     Dates: start: 20130423, end: 20130512
  2. IBUPROFEN 800MG [Concomitant]
  3. METFORMIN 1G [Concomitant]
  4. VITAMIN D 4,000 UNITS [Concomitant]
  5. LIPITOR 20MG [Concomitant]
  6. ASPIRIN 81 MG [Concomitant]
  7. LEVOTHYROXINE 0.175MG [Concomitant]
  8. OMEPRAZOLE 20MG TWICE DAILY [Concomitant]
  9. ALBUTEROL [Concomitant]

REACTIONS (1)
  - Pancreatitis [None]
